FAERS Safety Report 8820507 (Version 1)
Quarter: 2012Q4

REPORT INFORMATION
  Report Type: 
  Country: US (occurrence: US)
  Receive Date: 20121002
  Receipt Date: 20121002
  Transmission Date: 20130627
  Serious: Yes (Hospitalization)
  Sender: FDA-Public Use
  Company Number: US-COVIDIEN/TYCO HEALTHCARE/MALLINCKRODT-T201202822

PATIENT

DRUGS (2)
  1. EXALGO EXTENDED RELEASE [Suspect]
     Dosage: 8 mg,
  2. LORTAB                             /00607101/ [Concomitant]
     Dosage: 6-8 per day

REACTIONS (1)
  - Respiratory depression [Unknown]
